FAERS Safety Report 23951211 (Version 1)
Quarter: 2024Q2

REPORT INFORMATION
  Report Type: Spontaneous
  Country: ES (occurrence: ES)
  Receive Date: 20240607
  Receipt Date: 20240607
  Transmission Date: 20240716
  Serious: Yes (Life-Threatening, Hospitalization)
  Sender: FDA-Public Use
  Company Number: None

PATIENT
  Sex: Female

DRUGS (1)
  1. ACETAMINOPHEN [Suspect]
     Active Substance: ACETAMINOPHEN
     Indication: Postoperative analgesia
     Route: 042
     Dates: start: 20240404

REACTIONS (4)
  - Pyrexia [Unknown]
  - Erythema [Unknown]
  - Toxic skin eruption [Unknown]
  - Headache [Unknown]

NARRATIVE: CASE EVENT DATE: 20240404
